FAERS Safety Report 19829714 (Version 1)
Quarter: 2021Q3

REPORT INFORMATION
  Report Type: Spontaneous
  Country: US (occurrence: US)
  Receive Date: 20210915
  Receipt Date: 20210915
  Transmission Date: 20211014
  Serious: No
  Sender: FDA-Public Use
  Company Number: US-FARMAPROD-202009-1232

PATIENT
  Sex: Female

DRUGS (6)
  1. OXERVATE [Suspect]
     Active Substance: CENEGERMIN-BKBJ
     Indication: ULCERATIVE KERATITIS
  2. OXERVATE [Suspect]
     Active Substance: CENEGERMIN-BKBJ
     Indication: ULCERATIVE KERATITIS
     Route: 047
     Dates: start: 20210612
  3. OXERVATE [Suspect]
     Active Substance: CENEGERMIN-BKBJ
     Indication: NEUROTROPHIC KERATOPATHY
  4. AZOPT [Concomitant]
     Active Substance: BRINZOLAMIDE
  5. TIMOLOL/LATANOPROST [Concomitant]
  6. MURO 128 [Concomitant]
     Active Substance: SODIUM CHLORIDE

REACTIONS (7)
  - Eye pain [Unknown]
  - Swelling of eyelid [Not Recovered/Not Resolved]
  - Dry eye [Unknown]
  - Ocular hyperaemia [Not Recovered/Not Resolved]
  - Lacrimation increased [Not Recovered/Not Resolved]
  - Photophobia [Unknown]
  - Foreign body sensation in eyes [Unknown]
